FAERS Safety Report 7229178-1 (Version None)
Quarter: 2011Q1

REPORT INFORMATION
  Report Type: 
  Country: None (occurrence: None)
  Receive Date: 20110117
  Receipt Date: 20110110
  Transmission Date: 20110831
  Serious: Yes (Hospitalization, Other)
  Sender: FDA-Public Use
  Company Number: US-PFIZER INC-2010123467

PATIENT
  Sex: Male

DRUGS (10)
  1. ZOCOR [Suspect]
     Dosage: UNK
     Dates: end: 20040101
  2. NEXIUM [Concomitant]
  3. LIPITOR [Interacting]
     Indication: BLOOD CHOLESTEROL
     Dosage: UNK
     Dates: start: 20040604
  4. VIOXX [Concomitant]
  5. BEXTRA [Interacting]
     Indication: ARTHRALGIA
     Dosage: UNK
  6. PRINIVIL [Concomitant]
  7. PRILOSEC [Concomitant]
  8. PAXIL [Concomitant]
  9. VIAGRA [Concomitant]
     Indication: ERECTILE DYSFUNCTION
  10. VICODIN [Concomitant]

REACTIONS (54)
  - PALPITATIONS [None]
  - LOSS OF CONSCIOUSNESS [None]
  - HYPOAESTHESIA FACIAL [None]
  - MUSCULAR WEAKNESS [None]
  - MENTAL STATUS CHANGES [None]
  - INSOMNIA [None]
  - DEPRESSION [None]
  - DRUG INTERACTION [None]
  - ANXIETY [None]
  - DYSPNOEA [None]
  - DIZZINESS [None]
  - BLOOD GLUCOSE FLUCTUATION [None]
  - SKIN PAPILLOMA [None]
  - MUSCULOSKELETAL STIFFNESS [None]
  - HYPOTENSION [None]
  - MUSCULOSKELETAL PAIN [None]
  - HEADACHE [None]
  - NASAL CONGESTION [None]
  - GASTROINTESTINAL DISORDER [None]
  - SKIN CANCER [None]
  - PROSTATISM [None]
  - HEART RATE IRREGULAR [None]
  - OROPHARYNGEAL PAIN [None]
  - FAECES DISCOLOURED [None]
  - DYSURIA [None]
  - BLOOD URINE PRESENT [None]
  - PAIN [None]
  - PERIPHERAL ARTERIAL OCCLUSIVE DISEASE [None]
  - CHRONIC OBSTRUCTIVE PULMONARY DISEASE [None]
  - ARTHRALGIA [None]
  - MUSCLE DISORDER [None]
  - THROAT IRRITATION [None]
  - EYE SWELLING [None]
  - FLANK PAIN [None]
  - CONSTIPATION [None]
  - BLOOD GLUCOSE DECREASED [None]
  - FIBROMYALGIA [None]
  - ASTHENIA [None]
  - PAIN IN EXTREMITY [None]
  - NASAL DISORDER [None]
  - POLYP [None]
  - GASTROOESOPHAGEAL REFLUX DISEASE [None]
  - VERTIGO [None]
  - PANCREATITIS [None]
  - PANIC ATTACK [None]
  - OCULAR HYPERAEMIA [None]
  - RASH [None]
  - COUGH [None]
  - BRONCHITIS [None]
  - CHEST DISCOMFORT [None]
  - DIVERTICULUM [None]
  - SEASONAL ALLERGY [None]
  - RASH MACULAR [None]
  - BLOOD CREATINE PHOSPHOKINASE INCREASED [None]
